FAERS Safety Report 5123842-6 (Version None)
Quarter: 2006Q4

REPORT INFORMATION
  Report Type: 
  Country: None (occurrence: None)
  Receive Date: 20061010
  Receipt Date: 20050630
  Transmission Date: 20070319
  Serious: Yes (Other)
  Sender: FDA-Public Use
  Company Number: SE-GLAXOSMITHKLINE-B0386767A

PATIENT
  Age: 87 Year
  Sex: Male

DRUGS (8)
  1. AVODART [Suspect]
     Indication: URINARY TRACT DISORDER
     Route: 065
     Dates: start: 20031101, end: 20050601
  2. XATRAL [Concomitant]
  3. LASIX [Concomitant]
  4. TROMBYL [Concomitant]
  5. IMOVANE [Concomitant]
  6. ZOLOFT [Concomitant]
  7. BEHEPAN [Concomitant]
  8. SIMVASTATIN [Concomitant]

REACTIONS (3)
  - COUGH [None]
  - DYSPNOEA [None]
  - STRIDOR [None]
